FAERS Safety Report 6514725 (Version 3)
Quarter: 2013Q1

REPORT INFORMATION
  Report Type: Spontaneous
  Country: US (occurrence: US)
  Receive Date: 20071109
  Receipt Date: 20130321
  Transmission Date: 20140127
  Serious: Yes (Other)
  Sender: FDA-Public Use
  Company Number: PHEH2007US07409

PATIENT
  Age: 56 None
  Sex: Female
  Weight: 82.54 kg

DRUGS (46)
  1. ATROVENT [Concomitant]
  2. CHLORASEPTIC [Concomitant]
  3. TYLENOL [Concomitant]
  4. LIPITOR                                 /NET/ [Concomitant]
  5. HUMIRA [Concomitant]
  6. CASODEX [Concomitant]
  7. PHOSPHOLIPIDS [Concomitant]
  8. BIAXIN [Concomitant]
  9. ESTRADERM [Suspect]
     Indication: MENOPAUSE
     Dosage: 0.1 MG, UNK
     Route: 062
     Dates: start: 199505, end: 199603
  10. PREMPRO [Suspect]
     Indication: MENOPAUSE
     Dosage: .625/25 MG PO QD
     Route: 048
     Dates: start: 1993, end: 20020308
  11. CYCRIN [Suspect]
     Indication: MENOPAUSE
     Dosage: 10 MG, QD
     Route: 048
     Dates: start: 199505, end: 199610
  12. HORMONES NOS [Suspect]
     Indication: MENOPAUSE
     Dates: start: 1987, end: 1990
  13. PREMARIN /NEZ/ [Suspect]
     Indication: VAGINAL HAEMORRHAGE
     Dosage: 1.25 MG, QD
     Route: 048
     Dates: start: 1981, end: 1982
  14. NORVASC                                 /DEN/ [Concomitant]
     Indication: HYPERTENSION
     Dosage: 5 MG, QD
     Route: 048
     Dates: start: 1993
  15. GLYNASE [Concomitant]
     Indication: DIABETES MELLITUS
     Dosage: 3 MG, QD
     Route: 048
     Dates: start: 19931112
  16. DYAZIDE [Concomitant]
     Indication: HYPERTENSION
     Dosage: 37.5 MG, UNK
     Dates: start: 19900712
  17. DIABETA [Concomitant]
     Indication: DIABETES MELLITUS
     Dosage: 5 MG, QD
     Dates: start: 20031112
  18. FEMARA [Concomitant]
  19. ASPIRIN ^BAYER^ [Concomitant]
  20. FASLODEX [Concomitant]
  21. ACTOS                                   /USA/ [Concomitant]
  22. MULTIVITAMINS [Concomitant]
  23. FOLIC ACID [Concomitant]
  24. ABRAXANE [Concomitant]
  25. AVASTIN [Concomitant]
  26. COMPAZINE [Concomitant]
  27. FOSAMAX [Concomitant]
  28. MEGACE [Concomitant]
  29. GLYBURIDE [Concomitant]
  30. CARDIZEM [Concomitant]
  31. LOPRESSOR [Concomitant]
  32. VICODIN [Concomitant]
  33. LISINOPRIL [Concomitant]
  34. PIPROZOLIN [Concomitant]
  35. REGLAN                                  /USA/ [Concomitant]
  36. ALBUTEROL [Concomitant]
  37. ARANESP [Concomitant]
  38. PULMICORT [Concomitant]
  39. XOPENEX [Concomitant]
  40. ANCEF [Concomitant]
  41. NITROPRUSSIDE [Concomitant]
  42. PACLITAXEL [Concomitant]
  43. BUDESONIDE [Concomitant]
  44. HYDROCODONE [Concomitant]
  45. NOVOLIN R [Concomitant]
  46. HUMULIN R [Concomitant]

REACTIONS (24)
  - Metastases to lung [Unknown]
  - Pleural effusion [Unknown]
  - Hydropneumothorax [Recovered/Resolved]
  - Renal cyst [Unknown]
  - Scoliosis [Unknown]
  - Osteoarthritis [Unknown]
  - Atelectasis [Unknown]
  - Neutropenia [Unknown]
  - Cystitis [Unknown]
  - Anaemia [Unknown]
  - Tachycardia [Unknown]
  - Neuropathy peripheral [Unknown]
  - Osteoporosis [Unknown]
  - Chronic obstructive pulmonary disease [Unknown]
  - Sinus tachycardia [Unknown]
  - Electrocardiogram T wave abnormal [Unknown]
  - Invasive ductal breast carcinoma [Unknown]
  - Breast cancer metastatic [Unknown]
  - Breast mass [Unknown]
  - Nodule [Unknown]
  - Chest pain [Unknown]
  - Pain [Unknown]
  - Swelling [Unknown]
  - Dizziness [Unknown]
